FAERS Safety Report 8815505 (Version 1)
Quarter: 2012Q4

REPORT INFORMATION
  Report Type: 
  Country: US (occurrence: US)
  Receive Date: 20120928
  Receipt Date: 20120928
  Transmission Date: 20130627
  Serious: Yes (Other)
  Sender: FDA-Public Use
  Company Number: US-JNJFOC-20120910392

PATIENT
  Age: 65 None
  Sex: Female
  Weight: 129.73 kg

DRUGS (4)
  1. XARELTO [Suspect]
     Indication: THROMBOSIS
     Dosage: 4 doses
     Route: 048
     Dates: start: 20120803, end: 201208
  2. XARELTO [Suspect]
     Indication: KNEE ARTHROPLASTY
     Dosage: 4 doses
     Route: 048
     Dates: start: 20120803, end: 201208
  3. TORADOL [Suspect]
     Indication: PAIN
     Dates: start: 201208, end: 201208
  4. CELEBREX [Suspect]
     Indication: PREOPERATIVE CARE

REACTIONS (2)
  - Deep vein thrombosis [Recovered/Resolved]
  - Drug ineffective [Not Recovered/Not Resolved]
